FAERS Safety Report 23246942 (Version 4)
Quarter: 2024Q2

REPORT INFORMATION
  Report Type: Report from Study
  Country: PL (occurrence: PL)
  Receive Date: 20231130
  Receipt Date: 20240515
  Transmission Date: 20240715
  Serious: Yes (Other)
  Sender: FDA-Public Use
  Company Number: PL-ROCHE-3458351

PATIENT
  Age: 66 Year
  Sex: Female
  Weight: 70 kg

DRUGS (14)
  1. CARBOPLATIN [Suspect]
     Active Substance: CARBOPLATIN
     Indication: Small cell lung cancer extensive stage
     Dosage: 500 MG
     Route: 065
     Dates: start: 20220209
  2. ATEZOLIZUMAB [Suspect]
     Active Substance: ATEZOLIZUMAB
     Indication: Small cell lung cancer extensive stage
     Dosage: 1200 MG
     Route: 042
     Dates: start: 20220119
  3. ATEZOLIZUMAB [Suspect]
     Active Substance: ATEZOLIZUMAB
     Dosage: 1680 MG
     Route: 042
     Dates: start: 20230727
  4. ETOPOSIDE [Suspect]
     Active Substance: ETOPOSIDE
     Indication: Small cell lung cancer extensive stage
     Dosage: 165 MG
     Route: 042
     Dates: start: 20220209
  5. ENOXAPARIN [Concomitant]
     Active Substance: ENOXAPARIN
     Dosage: UNK
     Dates: start: 20220119
  6. DEXAMETHASONE [Concomitant]
     Active Substance: DEXAMETHASONE
     Dosage: UNK, 2X/DAY
     Dates: start: 20230807
  7. ACIPREX [ESCITALOPRAM OXALATE] [Concomitant]
     Dosage: UNK, 1X/DAY
     Dates: start: 20220212
  8. ESOMEPRAZOLE MAGNESIUM [Concomitant]
     Active Substance: ESOMEPRAZOLE MAGNESIUM
     Dosage: UNK
  9. METHIMAZOLE [Concomitant]
     Active Substance: METHIMAZOLE
     Dosage: UNK, 1X/DAY
     Dates: end: 20230824
  10. METHIMAZOLE [Concomitant]
     Active Substance: METHIMAZOLE
     Dates: end: 20230824
  11. PREDNISONE [Concomitant]
     Active Substance: PREDNISONE
     Dosage: UNK, 1X/DAY
     Dates: start: 20220921
  12. TEMAZEPAM [Concomitant]
     Active Substance: TEMAZEPAM
  13. DOXYCYCLINUM [DOXYCYCLINE] [Concomitant]
     Dosage: UNK, 1X/DAY
     Dates: start: 20220831
  14. HEPAREGEN [Concomitant]
     Dosage: UNK, 3X/DAY
     Dates: start: 20230624, end: 20231113

REACTIONS (2)
  - Alanine aminotransferase increased [Recovering/Resolving]
  - Alanine aminotransferase increased [Recovering/Resolving]

NARRATIVE: CASE EVENT DATE: 20230824
